FAERS Safety Report 21975609 (Version 2)
Quarter: 2023Q1

REPORT INFORMATION
  Report Type: Other
  Country: IT (occurrence: None)
  Receive Date: 20230210
  Receipt Date: 20230303
  Transmission Date: 20230417
  Serious: Yes (Hospitalization)
  Sender: FDA-Public Use
  Company Number: IT-ROCHE-3280328

PATIENT
  Age: 6 Year

DRUGS (3)
  1. EMICIZUMAB [Suspect]
     Active Substance: EMICIZUMAB
     Indication: Von Willebrand^s disease
     Route: 065
  2. ALPHANATE [Concomitant]
     Active Substance: HUMAN COAGULATION FACTOR VIII/VON WILLEBRAND FACTOR COMPLEX
  3. ENOXAPARIN [Concomitant]
     Active Substance: ENOXAPARIN

REACTIONS (3)
  - Thrombosis [Unknown]
  - Pulmonary embolism [Unknown]
  - Vena cava thrombosis [Unknown]
